FAERS Safety Report 5894457-7 (Version None)
Quarter: 2008Q3

REPORT INFORMATION
  Report Type: 
  Country: None (occurrence: None)
  Receive Date: 20080923
  Receipt Date: 20080923
  Transmission Date: 20090109
  Serious: Yes (Hospitalization)
  Sender: FDA-Public Use
  Company Number: None

PATIENT
  Age: 25 Year
  Sex: Female

DRUGS (1)
  1. LENALIDOMIDE [Suspect]

REACTIONS (3)
  - ATELECTASIS [None]
  - BACK PAIN [None]
  - PNEUMONIA [None]
